FAERS Safety Report 18709419 (Version 1)
Quarter: 2021Q1

REPORT INFORMATION
  Report Type: Spontaneous
  Country: US (occurrence: US)
  Receive Date: 20210106
  Receipt Date: 20210106
  Transmission Date: 20210419
  Serious: No
  Sender: FDA-Public Use
  Company Number: US-BAUSCH-BL-2020-037107

PATIENT
  Sex: Female

DRUGS (1)
  1. TRETINOIN GEL 0.01% [Suspect]
     Active Substance: TRETINOIN
     Indication: PRODUCT USED FOR UNKNOWN INDICATION
     Dosage: ON FACE
     Route: 061

REACTIONS (2)
  - Product quality issue [Unknown]
  - Drug ineffective [Unknown]
